FAERS Safety Report 5455644-5 (Version None)
Quarter: 2007Q3

REPORT INFORMATION
  Report Type: 
  Country: None (occurrence: None)
  Receive Date: 20070913
  Receipt Date: 20070913
  Transmission Date: 20080115
  Serious: Yes (Death)
  Sender: FDA-Public Use
  Company Number: None

PATIENT
  Sex: Male
  Weight: 52.1637 kg

DRUGS (2)
  1. XANAX [Suspect]
     Indication: CANCER PAIN
     Dosage: 0.5 MG 1 TAB T.I.D. PO
     Route: 048
     Dates: start: 20060205, end: 20060206
  2. LIQUID MORPHINE N/A UNKNOWN [Suspect]
     Indication: CANCER PAIN
     Dosage: 10 MG Q4H SL
     Route: 060
     Dates: start: 20060206, end: 20060206

REACTIONS (5)
  - FEELING DRUNK [None]
  - LOSS OF CONSCIOUSNESS [None]
  - MEDICATION ERROR [None]
  - OVERDOSE [None]
  - STUPOR [None]
